FAERS Safety Report 4476817-4 (Version None)
Quarter: 2004Q4

REPORT INFORMATION
  Report Type: 
  Country: None (occurrence: None)
  Receive Date: 20041013
  Receipt Date: 20041001
  Transmission Date: 20050328
  Serious: Yes (Death, Hospitalization)
  Sender: FDA-Public Use
  Company Number: 209151

PATIENT
  Age: 60 Year
  Sex: Male

DRUGS (5)
  1. RITUXAN [Suspect]
     Indication: LYMPHOMA
     Dosage: 750 MG, Q3W
     Dates: start: 20040519, end: 20040809
  2. CYCLOPHOSPHAMIDE [Concomitant]
  3. VINCRISTINE [Concomitant]
  4. DOXORUBICIN HYDROCHLORIDE [Concomitant]
  5. PREDNISONE [Concomitant]

REACTIONS (3)
  - CONDITION AGGRAVATED [None]
  - HEPATIC FAILURE [None]
  - HEPATITIS B [None]
